FAERS Safety Report 25118168 (Version 1)
Quarter: 2025Q1

REPORT INFORMATION
  Report Type: Spontaneous
  Country: ES (occurrence: ES)
  Receive Date: 20250325
  Receipt Date: 20250325
  Transmission Date: 20250409
  Serious: Yes (Other)
  Sender: MYLAN
  Company Number: None

PATIENT
  Age: 29 Year
  Sex: Female

DRUGS (1)
  1. GABAPENTIN [Suspect]
     Active Substance: GABAPENTIN
     Indication: Pain
     Dosage: 200 MILLIGRAM, QD (200 MG/24 H)
     Dates: start: 20250225, end: 20250227

REACTIONS (1)
  - Lactation insufficiency [Recovering/Resolving]

NARRATIVE: CASE EVENT DATE: 20250227
